FAERS Safety Report 8086800-8 (Version None)
Quarter: 2012Q1

REPORT INFORMATION
  Report Type: 
  Country: None (occurrence: None)
  Receive Date: 20120128
  Receipt Date: 20110606
  Transmission Date: 20120608
  Serious: No
  Sender: FDA-Public Use
  Company Number: US-ABBOTT-11P-163-0726820-00

PATIENT
  Sex: Male
  Weight: 83.99 kg

DRUGS (4)
  1. HUMIRA [Suspect]
     Indication: PSORIASIS
     Dates: start: 20110401, end: 20110401
  2. HUMIRA [Suspect]
     Dosage: ON DAY 8
     Dates: start: 20090601, end: 20101101
  3. HUMIRA [Suspect]
     Dates: start: 20110501
  4. METOPROLOL TARTRATE [Concomitant]
     Indication: HYPERTENSION
     Dosage: DAILY

REACTIONS (3)
  - PSORIASIS [None]
  - DRUG INEFFECTIVE [None]
  - PRURITUS [None]
